FAERS Safety Report 7282016-3 (Version None)
Quarter: 2011Q1

REPORT INFORMATION
  Report Type: 
  Country: None (occurrence: None)
  Receive Date: 20110208
  Receipt Date: 20110119
  Transmission Date: 20110831
  Serious: Yes (Other)
  Sender: FDA-Public Use
  Company Number: PHHY2011US05438

PATIENT
  Age: 45 Year
  Sex: Male

DRUGS (5)
  1. VENLAFAXINE [Suspect]
     Indication: DEPRESSION
     Dosage: 75 MG, QD
  2. CLONAZEPAM [Suspect]
     Indication: DEPRESSION
     Dosage: 3 MG, QD
  3. DULOXETINE [Concomitant]
     Dosage: 60 MG, QD
  4. PAROXETINE HCL [Suspect]
     Indication: DEPRESSION
     Dosage: 10 MG, QD
  5. BUPROPION [Concomitant]

REACTIONS (2)
  - DYSPHORIA [None]
  - DEPRESSION [None]
